FAERS Safety Report 6140516-3 (Version None)
Quarter: 2009Q1

REPORT INFORMATION
  Report Type: 
  Country: None (occurrence: None)
  Receive Date: 20090331
  Receipt Date: 20090320
  Transmission Date: 20090719
  Serious: Yes (Other)
  Sender: FDA-Public Use
  Company Number: 57891

PATIENT
  Age: 64 Year
  Sex: Female

DRUGS (1)
  1. CARBOPLATIN [Suspect]
     Indication: BONE MARROW DISORDER
     Dosage: 700MG 2 DAYS IN A RAW

REACTIONS (1)
  - ACCIDENTAL OVERDOSE [None]
